FAERS Safety Report 9531051 (Version 1)
Quarter: 2013Q3

REPORT INFORMATION
  Report Type: Spontaneous
  Country: US (occurrence: None)
  Receive Date: 20130916
  Receipt Date: 20130916
  Transmission Date: 20140515
  Serious: Yes (Death)
  Sender: FDA-Public Use
  Company Number: None

PATIENT
  Age: 85 Year
  Sex: Male
  Weight: 61.24 kg

DRUGS (5)
  1. LEVETIRACETAM [Suspect]
     Indication: CONVULSION
     Route: 048
     Dates: start: 20120508, end: 20120917
  2. BENEDRYL [Concomitant]
  3. IMOVANE [Concomitant]
  4. TRAZODONE [Concomitant]
  5. MULTIVITAMINS [Concomitant]

REACTIONS (5)
  - Anger [None]
  - Completed suicide [None]
  - Gun shot wound [None]
  - Chest injury [None]
  - Anxiety [None]
